FAERS Safety Report 16402263 (Version 2)
Quarter: 2019Q3

REPORT INFORMATION
  Report Type: Spontaneous
  Country: US (occurrence: US)
  Receive Date: 20190607
  Receipt Date: 20190723
  Transmission Date: 20191004
  Serious: Yes (Hospitalization)
  Sender: FDA-Public Use
  Company Number: PHHY2019US129070

PATIENT
  Age: 39 Year
  Sex: Female

DRUGS (5)
  1. TRASTUZUMAB. [Suspect]
     Active Substance: TRASTUZUMAB
     Dosage: 6 MG/M2, TIW
     Route: 042
  2. ENTINOSTAT [Suspect]
     Active Substance: ENTINOSTAT
     Indication: HER-2 POSITIVE BREAST CANCER
     Dosage: 15 MG, BIW
     Route: 048
  3. ENTINOSTAT [Suspect]
     Active Substance: ENTINOSTAT
     Dosage: 12 MG, UNK
     Route: 048
  4. TYKERB [Suspect]
     Active Substance: LAPATINIB DITOSYLATE
     Indication: HER-2 POSITIVE BREAST CANCER
     Dosage: 1250 MG, QD (28 DAYS AS ONE CYCLE)
     Route: 048
     Dates: start: 20120816, end: 20121010
  5. TRASTUZUMAB. [Suspect]
     Active Substance: TRASTUZUMAB
     Indication: HER-2 POSITIVE BREAST CANCER
     Dosage: 8 MG/M2, UNK (INITIAL LOADING DOSE )
     Route: 042

REACTIONS (1)
  - Hypokalaemia [Recovered/Resolved]

NARRATIVE: CASE EVENT DATE: 20120913
